FAERS Safety Report 4355617-X (Version None)
Quarter: 2004Q2

REPORT INFORMATION
  Report Type: 
  Country: None (occurrence: None)
  Receive Date: 20040505
  Receipt Date: 20040421
  Transmission Date: 20050107
  Serious: Yes (Death, Life-Threatening)
  Sender: FDA-Public Use
  Company Number: 2003AP03805

PATIENT
  Age: 76 Year
  Sex: Male

DRUGS (5)
  1. IRESSA [Suspect]
     Indication: LUNG ADENOCARCINOMA
     Dosage: 250 MG DAILY PO
     Route: 048
     Dates: start: 20030916, end: 20031010
  2. IRESSA [Suspect]
     Indication: NON-SMALL CELL LUNG CANCER
     Dosage: 250 MG DAILY PO
     Route: 048
     Dates: start: 20030916, end: 20031010
  3. PACLITAXEL [Concomitant]
  4. CARBOPLATIN [Concomitant]
  5. NORVASC [Concomitant]

REACTIONS (17)
  - ASTHENIA [None]
  - BINOCULAR EYE MOVEMENT DISORDER [None]
  - BLOOD PRESSURE IMMEASURABLE [None]
  - BRAIN OEDEMA [None]
  - CHILLS [None]
  - DEPRESSED LEVEL OF CONSCIOUSNESS [None]
  - DISSEMINATED INTRAVASCULAR COAGULATION [None]
  - HAEMOGLOBIN DECREASED [None]
  - HEART RATE DECREASED [None]
  - INTERSTITIAL LUNG DISEASE [None]
  - LUNG DISORDER [None]
  - METASTASES TO CENTRAL NERVOUS SYSTEM [None]
  - NAUSEA [None]
  - PERIPHERAL COLDNESS [None]
  - PNEUMONIA [None]
  - RESPIRATORY FAILURE [None]
  - SOMNOLENCE [None]
